FAERS Safety Report 7924324-6 (Version None)
Quarter: 2011Q4

REPORT INFORMATION
  Report Type: 
  Country: None (occurrence: None)
  Receive Date: 20111117
  Receipt Date: 20110321
  Transmission Date: 20120403
  Serious: No
  Sender: FDA-Public Use
  Company Number: US-AMGEN-USASP2011015133

PATIENT
  Sex: Female

DRUGS (1)
  1. ENBREL [Suspect]
     Indication: RHEUMATOID ARTHRITIS
     Dates: start: 20030129

REACTIONS (4)
  - ARTHRALGIA [None]
  - MUSCULOSKELETAL STIFFNESS [None]
  - FATIGUE [None]
  - HEADACHE [None]
